FAERS Safety Report 4364125-1 (Version None)
Quarter: 2004Q2

REPORT INFORMATION
  Report Type: 
  Country: None (occurrence: None)
  Receive Date: 20040519
  Receipt Date: 20040507
  Transmission Date: 20050107
  Serious: Yes (Other)
  Sender: FDA-Public Use
  Company Number: S04-USA-02759-01

PATIENT
  Sex: Female

DRUGS (1)
  1. ARMOUR THYROID (TYHYROID) [Suspect]
     Indication: HYPOPITUITARISM
     Dates: start: 19940101

REACTIONS (1)
  - LYME DISEASE [None]
